FAERS Safety Report 19726533 (Version 1)
Quarter: 2021Q3

REPORT INFORMATION
  Report Type: Spontaneous
  Country: US (occurrence: US)
  Receive Date: 20210819
  Receipt Date: 20210819
  Transmission Date: 20211014
  Serious: No
  Sender: FDA-Public Use
  Company Number: None

PATIENT
  Sex: Female

DRUGS (1)
  1. METHOTREXATE SDV (2ML) 50MG/2ML WEST?WARD [Suspect]
     Active Substance: METHOTREXATE
     Indication: OVERLAP SYNDROME
     Route: 058
     Dates: start: 20190327

REACTIONS (1)
  - Drug ineffective [None]
